FAERS Safety Report 8573605-4 (Version None)
Quarter: 2012Q3

REPORT INFORMATION
  Report Type: 
  Country: None (occurrence: None)
  Receive Date: 20120806
  Receipt Date: 20120726
  Transmission Date: 20120928
  Serious: No
  Sender: FDA-Public Use
  Company Number: US-ASTRAZENECA-2012SE30288

PATIENT
  Age: 55 Year
  Sex: Male

DRUGS (2)
  1. NEXIUM [Suspect]
     Route: 048
  2. NEXIUM [Suspect]
     Route: 048

REACTIONS (5)
  - READING DISORDER [None]
  - JOINT INJURY [None]
  - ROAD TRAFFIC ACCIDENT [None]
  - DYSGRAPHIA [None]
  - INTENTIONAL DRUG MISUSE [None]
